FAERS Safety Report 4900986-2 (Version None)
Quarter: 2006Q1

REPORT INFORMATION
  Report Type: 
  Country: None (occurrence: None)
  Receive Date: 20060203
  Receipt Date: 20050202
  Transmission Date: 20060701
  Serious: Yes (Hospitalization, Other)
  Sender: FDA-Public Use
  Company Number: US-MERCK-0502USA00367

PATIENT
  Age: 36 Year
  Sex: Female

DRUGS (1)
  1. VIOXX [Suspect]
     Route: 048
     Dates: start: 19990501, end: 20040930

REACTIONS (29)
  - ABDOMINAL PAIN [None]
  - ANXIETY [None]
  - ARTHRITIS [None]
  - ASTHMA [None]
  - BACK PAIN [None]
  - BLINDNESS TRANSIENT [None]
  - CONSTIPATION [None]
  - COSTOCHONDRITIS [None]
  - DEPRESSION [None]
  - DIABETES MELLITUS [None]
  - DYSPHAGIA [None]
  - EAR DISORDER [None]
  - EAR INFECTION [None]
  - FEELING HOT [None]
  - HEADACHE [None]
  - HYPERTENSION [None]
  - HYPOXIA [None]
  - MUSCULOSKELETAL CHEST PAIN [None]
  - NAUSEA [None]
  - OVARIAN CYST [None]
  - PAIN IN EXTREMITY [None]
  - PELVIC PAIN [None]
  - PLEURISY [None]
  - PULMONARY EMBOLISM [None]
  - PYREXIA [None]
  - SINUS DISORDER [None]
  - TINNITUS [None]
  - VISION BLURRED [None]
  - VISUAL DISTURBANCE [None]
